FAERS Safety Report 20580763 (Version 5)
Quarter: 2022Q3

REPORT INFORMATION
  Report Type: Report from Study
  Country: AR (occurrence: AR)
  Receive Date: 20220311
  Receipt Date: 20220812
  Transmission Date: 20221027
  Serious: Yes (Other)
  Sender: FDA-Public Use
  Company Number: AR-NOVARTISPH-NVSC2020AR063437

PATIENT
  Age: 32 Year
  Sex: Female

DRUGS (2)
  1. COSENTYX [Suspect]
     Active Substance: SECUKINUMAB
     Indication: Psoriasis
     Dosage: 300 MG, QMO
     Route: 058
     Dates: start: 20180329, end: 20200203
  2. COSENTYX [Suspect]
     Active Substance: SECUKINUMAB
     Indication: Psoriatic arthropathy

REACTIONS (11)
  - Uveitis [Recovering/Resolving]
  - Conjunctivitis [Recovering/Resolving]
  - Arthralgia [Unknown]
  - Condition aggravated [Not Recovered/Not Resolved]
  - Sciatica [Not Recovered/Not Resolved]
  - Pain [Unknown]
  - Gait inability [Unknown]
  - Greater trochanteric pain syndrome [Unknown]
  - Mobility decreased [Unknown]
  - Liver disorder [Unknown]
  - Drug ineffective [Unknown]

NARRATIVE: CASE EVENT DATE: 20180301
